FAERS Safety Report 8385900-2 (Version None)
Quarter: 2012Q2

REPORT INFORMATION
  Report Type: 
  Country: None (occurrence: None)
  Receive Date: 20120525
  Receipt Date: 20120515
  Transmission Date: 20120825
  Serious: Yes (Hospitalization, Other)
  Sender: FDA-Public Use
  Company Number: JP-MPIJNJ-2012-03337

PATIENT

DRUGS (2)
  1. DEXAMETHASONE [Concomitant]
     Indication: LEUKAEMIA PLASMACYTIC
  2. VELCADE [Suspect]
     Indication: LEUKAEMIA PLASMACYTIC
     Dosage: 1.3 MG, UNK
     Route: 042

REACTIONS (5)
  - DUODENAL ULCER HAEMORRHAGE [None]
  - MYOCARDIAL HAEMORRHAGE [None]
  - SHOCK HAEMORRHAGIC [None]
  - CARDIAC ARREST [None]
  - LUNG DISORDER [None]
